FAERS Safety Report 11845225 (Version 1)
Quarter: 2015Q4

REPORT INFORMATION
  Report Type: Spontaneous
  Country: US (occurrence: US)
  Receive Date: 20151217
  Receipt Date: 20151217
  Transmission Date: 20160305
  Serious: No
  Sender: FDA-Public Use
  Company Number: US-PFIZER INC-2015398874

PATIENT
  Age: 53 Year
  Sex: Female

DRUGS (1)
  1. IBRANCE [Suspect]
     Active Substance: PALBOCICLIB
     Indication: PLASMA CELL MYELOMA
     Dosage: 125 MG, CYCLIC (Q21D EVERY 28 DAYS)
     Route: 048

REACTIONS (3)
  - Disease progression [Unknown]
  - Product use issue [Unknown]
  - Plasma cell myeloma [Unknown]
